FAERS Safety Report 7756386-3 (Version None)
Quarter: 2011Q3

REPORT INFORMATION
  Report Type: 
  Country: None (occurrence: None)
  Receive Date: 20110916
  Receipt Date: 20110909
  Transmission Date: 20111222
  Serious: Yes (Life-Threatening)
  Sender: FDA-Public Use
  Company Number: FR-ROCHE-801883

PATIENT
  Sex: Male

DRUGS (5)
  1. METHADONE HCL [Concomitant]
  2. CYMBALTA [Suspect]
     Route: 048
     Dates: end: 20110723
  3. VALIUM [Suspect]
     Route: 048
     Dates: end: 20110723
  4. NOCTRAN 10 [Suspect]
     Route: 048
     Dates: end: 20110723
  5. DEPAKOTE [Suspect]
     Route: 048
     Dates: start: 20110718, end: 20110723

REACTIONS (3)
  - SEROTONIN SYNDROME [None]
  - COMA [None]
  - RESPIRATORY DISTRESS [None]
